FAERS Safety Report 24353595 (Version 1)
Quarter: 2024Q3

REPORT INFORMATION
  Report Type: Spontaneous
  Country: US (occurrence: US)
  Receive Date: 20240923
  Receipt Date: 20240923
  Transmission Date: 20241017
  Serious: No
  Sender: PAREXEL
  Company Number: US-Stemline Therapeutics, Inc.-2024ST004573

PATIENT
  Age: 57 Year
  Sex: Female

DRUGS (1)
  1. ORSERDU [Suspect]
     Active Substance: ELACESTRANT
     Indication: Product used for unknown indication
     Dosage: 345 MG
     Dates: start: 20240720

REACTIONS (3)
  - Dysphagia [Not Recovered/Not Resolved]
  - Product size issue [Not Recovered/Not Resolved]
  - Wrong technique in product usage process [Not Recovered/Not Resolved]
